FAERS Safety Report 7741965-X (Version None)
Quarter: 2011Q3

REPORT INFORMATION
  Report Type: 
  Country: None (occurrence: None)
  Receive Date: 20110831
  Receipt Date: 20110815
  Transmission Date: 20111222
  Serious: Yes (Other)
  Sender: FDA-Public Use
  Company Number: 2011SP025498

PATIENT
  Age: 46 Year
  Sex: Female

DRUGS (4)
  1. IMPLANON [Suspect]
     Indication: CONTRACEPTION
     Dosage: 68 MG, SC
     Route: 058
     Dates: start: 20090101, end: 20110610
  2. IMPLANON [Suspect]
     Indication: CONTRACEPTION
     Dosage: 68 MG, SC
     Route: 058
     Dates: start: 20030101, end: 20060101
  3. IMPLANON [Suspect]
     Indication: CONTRACEPTION
     Dosage: 68 MG, SC
     Route: 058
     Dates: start: 20000721, end: 20030101
  4. IMPLANON [Suspect]
     Indication: CONTRACEPTION
     Dosage: 68 MG, SC
     Route: 058
     Dates: start: 20060101, end: 20090101

REACTIONS (3)
  - FOOT FRACTURE [None]
  - OSTEOPOROSIS [None]
  - OSTEOPENIA [None]
